FAERS Safety Report 5419077-X (Version None)
Quarter: 2007Q3

REPORT INFORMATION
  Report Type: 
  Country: None (occurrence: None)
  Receive Date: 20070817
  Receipt Date: 20070817
  Transmission Date: 20080115
  Serious: Yes (Life-Threatening, Hospitalization)
  Sender: FDA-Public Use
  Company Number: None

PATIENT
  Sex: Female
  Weight: 50.8029 kg

DRUGS (2)
  1. SOLODYN [Suspect]
     Indication: ACNE
     Dosage: 45 MG QD PO
     Route: 048
     Dates: start: 20070511
  2. BENADRYL [Concomitant]

REACTIONS (3)
  - AUTOIMMUNE DISORDER [None]
  - HEPATITIS [None]
  - LUPUS-LIKE SYNDROME [None]
